FAERS Safety Report 20976395 (Version 3)
Quarter: 2022Q3

REPORT INFORMATION
  Report Type: Spontaneous
  Country: CN (occurrence: CN)
  Receive Date: 20220617
  Receipt Date: 20220718
  Transmission Date: 20221026
  Serious: Yes (Other)
  Sender: FDA-Public Use
  Company Number: CN-009507513-2206CHN001873

PATIENT
  Age: 70 Year
  Sex: Female
  Weight: 65 kg

DRUGS (4)
  1. CILASTATIN SODIUM\IMIPENEM [Suspect]
     Active Substance: CILASTATIN SODIUM\IMIPENEM
     Indication: Abdominal infection
     Dosage: 1 G, Q8H
     Route: 041
     Dates: start: 20220418, end: 20220423
  2. SODIUM CHLORIDE [Suspect]
     Active Substance: SODIUM CHLORIDE
     Indication: Medication dilution
     Dosage: 100 ML, Q8H
     Route: 041
     Dates: start: 20220418, end: 20220423
  3. PHOSPHOLIPID [Suspect]
     Active Substance: PHOSPHOLIPID
     Indication: Liver injury
     Dosage: 456 MILLIGRAM, AFTER MEALS, 3 TIMES A DAY (TID)
     Route: 048
     Dates: start: 20220421, end: 20220423
  4. BICYCLOL [Suspect]
     Active Substance: BICYCLOL
     Indication: Liver injury
     Dosage: 25 MILLIGRAM, AFTER MEALS, 3 TIMES A DAY (TID)
     Route: 048
     Dates: start: 20220421, end: 20220423

REACTIONS (3)
  - Liver injury [Unknown]
  - Pruritus [Recovering/Resolving]
  - Rash maculo-papular [Recovering/Resolving]

NARRATIVE: CASE EVENT DATE: 20220401
